FAERS Safety Report 7279368-7 (Version None)
Quarter: 2011Q1

REPORT INFORMATION
  Report Type: 
  Country: None (occurrence: None)
  Receive Date: 20110208
  Receipt Date: 20110128
  Transmission Date: 20110831
  Serious: Yes (Other)
  Sender: FDA-Public Use
  Company Number: BR-AMGEN-BRASP2010009748

PATIENT
  Age: 51 Year
  Sex: Female
  Weight: 70 kg

DRUGS (7)
  1. ENBREL [Suspect]
     Indication: RHEUMATOID ARTHRITIS
     Dosage: 25 MG, 2X/WEEK
     Route: 058
     Dates: start: 20100701
  2. MESTINON [Concomitant]
     Indication: MYASTHENIA GRAVIS
     Dosage: UNK
  3. SEROQUEL [Concomitant]
     Indication: DEPRESSION
     Dosage: UNK
     Dates: start: 20101101
  4. TEGRETOL [Concomitant]
     Indication: DEPRESSION
     Dosage: UNK
     Dates: start: 20101101
  5. CITALOPRAM [Concomitant]
     Indication: DEPRESSION
     Dosage: UNK
     Dates: start: 20090101
  6. CHONDROITIN SODIUM SULFATE W/GLUCOSAMINE HCL [Concomitant]
     Indication: ARTHRITIS
     Dosage: UNK
  7. OMEPRAZOLE [Concomitant]
     Indication: PROPHYLAXIS
     Dosage: UNK

REACTIONS (2)
  - DEPRESSION [None]
  - RHEUMATOID ARTHRITIS [None]
